FAERS Safety Report 11367353 (Version 1)
Quarter: 2015Q3

REPORT INFORMATION
  Report Type: Spontaneous
  Country: US (occurrence: US)
  Receive Date: 20150811
  Receipt Date: 20150811
  Transmission Date: 20151125
  Serious: No
  Sender: FDA-Public Use
  Company Number: US-ELI_LILLY_AND_COMPANY-US201202000659

PATIENT
  Sex: Male

DRUGS (3)
  1. AXIRON [Suspect]
     Active Substance: TESTOSTERONE
     Dosage: 30 MG, UNK
  2. LISINOPRIL. [Concomitant]
     Active Substance: LISINOPRIL
  3. AXIRON [Suspect]
     Active Substance: TESTOSTERONE
     Indication: BLOOD TESTOSTERONE DECREASED
     Dosage: 30 MG, UNK

REACTIONS (3)
  - Gynaecomastia [Recovering/Resolving]
  - Blood pressure increased [Unknown]
  - Blood testosterone decreased [Recovering/Resolving]
